FAERS Safety Report 23515287 (Version 1)
Quarter: 2024Q1

REPORT INFORMATION
  Report Type: Spontaneous
  Country: US (occurrence: US)
  Receive Date: 20240213
  Receipt Date: 20240213
  Transmission Date: 20240409
  Serious: No
  Sender: FDA-Public Use
  Company Number: US-TEVA-VS-3153934

PATIENT
  Age: 67 Year
  Sex: Female
  Weight: 58.06 kg

DRUGS (5)
  1. AJOVY [Suspect]
     Active Substance: FREMANEZUMAB-VFRM
     Indication: Migraine
     Route: 058
     Dates: start: 20240203
  2. LURASIDONE [Concomitant]
     Active Substance: LURASIDONE
  3. ZYPREXA [Concomitant]
     Active Substance: OLANZAPINE
  4. TOPIRAMATE [Concomitant]
     Active Substance: TOPIRAMATE
  5. RIZATRIPTAN [Concomitant]
     Active Substance: RIZATRIPTAN

REACTIONS (1)
  - Drug ineffective [Unknown]

NARRATIVE: CASE EVENT DATE: 20240203
